FAERS Safety Report 9071848 (Version 1)
Quarter: 2013Q1

REPORT INFORMATION
  Report Type: Report from Study
  Country: US (occurrence: US)
  Receive Date: 20130129
  Receipt Date: 20130129
  Transmission Date: 20140127
  Serious: No
  Sender: FDA-Public Use
  Company Number: US-ABBOTT-12P-163-0922353-00

PATIENT
  Sex: Female
  Weight: 105.78 kg

DRUGS (11)
  1. HUMIRA 40 MG/0.8 ML PEN [Suspect]
     Indication: PSORIASIS
     Dates: start: 20111103
  2. HUMIRA 40 MG/0.8 ML PEN [Suspect]
     Dates: start: 20120315
  3. PREDNISONE [Concomitant]
     Indication: PSORIASIS
  4. ATENOLOL [Concomitant]
     Indication: HYPERTENSION
  5. FISH OIL [Concomitant]
     Indication: SUPPLEMENTATION THERAPY
  6. ANTIOXIDANT [Concomitant]
     Indication: SUPPLEMENTATION THERAPY
  7. COD LIVER OIL [Concomitant]
     Indication: SUPPLEMENTATION THERAPY
  8. VITAMIN E [Concomitant]
     Indication: VITAMIN SUPPLEMENTATION
  9. CALCIUM WITH VITAMIN D [Concomitant]
     Indication: MINERAL SUPPLEMENTATION
  10. MAGNESIUM [Concomitant]
     Indication: MINERAL SUPPLEMENTATION
  11. HAIR, SKIN AND NAIL VITAMIN [Concomitant]
     Indication: VITAMIN SUPPLEMENTATION

REACTIONS (5)
  - Lung disorder [Unknown]
  - Drug ineffective [Not Recovered/Not Resolved]
  - Injection site pain [Recovered/Resolved]
  - Hepatic enzyme increased [Unknown]
  - Blood pressure increased [Recovered/Resolved]
